FAERS Safety Report 7619415-3 (Version None)
Quarter: 2011Q3

REPORT INFORMATION
  Report Type: 
  Country: None (occurrence: None)
  Receive Date: 20110719
  Receipt Date: 20110406
  Transmission Date: 20111222
  Serious: No
  Sender: FDA-Public Use
  Company Number: US-BIOGENIDEC-2011BI009668

PATIENT
  Sex: Male

DRUGS (1)
  1. TYSABRI [Suspect]
     Indication: MULTIPLE SCLEROSIS
     Route: 042
     Dates: start: 20090623, end: 20110204

REACTIONS (8)
  - SLEEP APNOEA SYNDROME [None]
  - MEMORY IMPAIRMENT [None]
  - GENERAL SYMPTOM [None]
  - BLINDNESS UNILATERAL [None]
  - COORDINATION ABNORMAL [None]
  - MULTIPLE SCLEROSIS [None]
  - NUCLEAR MAGNETIC RESONANCE IMAGING ABNORMAL [None]
  - MULTIPLE SCLEROSIS RELAPSE [None]
